FAERS Safety Report 20091038 (Version 11)
Quarter: 2024Q3

REPORT INFORMATION
  Report Type: Spontaneous
  Country: US (occurrence: US)
  Receive Date: 20211119
  Receipt Date: 20240904
  Transmission Date: 20241017
  Serious: Yes (Other)
  Sender: PFIZER
  Company Number: US-PFIZER INC-2021534670

PATIENT
  Age: 70 Year
  Sex: Female
  Weight: 104.33 kg

DRUGS (4)
  1. XELJANZ [Suspect]
     Active Substance: TOFACITINIB CITRATE
     Indication: Rheumatoid arthritis
     Dosage: 5 MG, 2X/DAY
     Route: 048
  2. DILTIAZEM [Concomitant]
     Active Substance: DILTIAZEM
     Dosage: UNK
  3. CEPHALEXIN [Concomitant]
     Active Substance: CEPHALEXIN
     Dosage: UNK
  4. XARELTO [Concomitant]
     Active Substance: RIVAROXABAN
     Dosage: UNK

REACTIONS (12)
  - Diabetes mellitus [Unknown]
  - Skin cancer [Recovered/Resolved]
  - Urinary tract infection [Unknown]
  - Sinusitis [Unknown]
  - Limb injury [Unknown]
  - Impaired healing [Not Recovered/Not Resolved]
  - Hypersensitivity [Unknown]
  - Depression [Unknown]
  - Stress [Unknown]
  - Palpitations [Unknown]
  - Intercepted product prescribing error [Unknown]
  - Immune system disorder [Not Recovered/Not Resolved]
